FAERS Safety Report 5646732-9 (Version None)
Quarter: 2008Q1

REPORT INFORMATION
  Report Type: 
  Country: None (occurrence: None)
  Receive Date: 20080303
  Receipt Date: 20080228
  Transmission Date: 20080703
  Serious: Yes (Hospitalization)
  Sender: FDA-Public Use
  Company Number: HQWYE945213DEC04

PATIENT
  Sex: Male
  Weight: 80.63 kg

DRUGS (19)
  1. SIROLIMUS [Suspect]
     Indication: PROPHYLAXIS AGAINST TRANSPLANT REJECTION
     Dosage: DOSE VARIES (CONCENTRATION CONTROLLED); 2 MG, 2 MG AND 1 MG ALTERNATING ON A CYCLICAL BASIS
     Dates: start: 20040409
  2. LASIX [Concomitant]
     Route: 048
  3. CLONIDINE [Concomitant]
     Route: 048
  4. METOPROLOL TARTRATE [Concomitant]
     Route: 048
  5. PREDNISONE TAB [Concomitant]
     Route: 048
  6. GLIPIZIDE [Concomitant]
     Dosage: 10 MG QAM AND 5 MG QPM
  7. FOLIC ACID [Concomitant]
     Route: 048
  8. FISH OIL, HYDROGENATED [Concomitant]
     Dosage: 2 DAILY
  9. LIPITOR [Concomitant]
  10. ASPIRIN [Concomitant]
     Route: 048
  11. IMDUR [Concomitant]
     Route: 048
  12. LANSOPRAZOLE [Concomitant]
  13. MAGNESIUM OXIDE [Concomitant]
  14. URSODIOL [Concomitant]
  15. SODIUM BICARBONATE [Concomitant]
  16. ALLOPURINOL [Concomitant]
  17. ZOLPIDEM [Concomitant]
  18. HYDRALAZINE HCL [Concomitant]
     Indication: HYPERTENSION
     Route: 048
     Dates: end: 20041115
  19. HYDRALAZINE HCL [Concomitant]
     Route: 048
     Dates: start: 20041116

REACTIONS (1)
  - RENAL FAILURE [None]
